FAERS Safety Report 4393107-9 (Version None)
Quarter: 2004Q3

REPORT INFORMATION
  Report Type: 
  Country: None (occurrence: None)
  Receive Date: 20040706
  Receipt Date: 20040518
  Transmission Date: 20050211
  Serious: Yes (Hospitalization)
  Sender: FDA-Public Use
  Company Number: 200413844US

PATIENT
  Sex: Female
  Weight: 109 kg

DRUGS (23)
  1. TAXOTERE [Suspect]
     Indication: BREAST CANCER METASTATIC
     Dates: start: 20040219
  2. TRASTUZUMAB [Concomitant]
  3. GLYBURIDE [Concomitant]
     Route: 048
  4. LIPITOR [Concomitant]
  5. PAXIL [Concomitant]
  6. ASPIRIN [Concomitant]
  7. VITAMIN C [Concomitant]
  8. VITAMIN E [Concomitant]
  9. LORAZEPAM [Concomitant]
  10. CALCIUM [Concomitant]
  11. MICRO-K [Concomitant]
  12. HERCEPTIN [Concomitant]
  13. ATENOLOL [Concomitant]
  14. LASIX [Concomitant]
  15. VITAMIN B-12 [Concomitant]
  16. FOLIC ACID [Concomitant]
  17. VALIUM [Concomitant]
  18. DECADRON [Concomitant]
  19. ALBUTEROL [Concomitant]
     Dosage: DOSE: 2 PUFFS
  20. RESTORIL [Concomitant]
  21. MELATONIN [Concomitant]
  22. COMPAZINE [Concomitant]
  23. ALLEGRA [Concomitant]

REACTIONS (4)
  - BLOOD PRESSURE SYSTOLIC INCREASED [None]
  - DRUG TOXICITY [None]
  - LUNG DISORDER [None]
  - SCAR [None]
